FAERS Safety Report 16929278 (Version 1)
Quarter: 2019Q4

REPORT INFORMATION
  Report Type: Spontaneous
  Country: BG (occurrence: BG)
  Receive Date: 20191017
  Receipt Date: 20191017
  Transmission Date: 20200122
  Serious: Yes (Hospitalization)
  Sender: FDA-Public Use
  Company Number: BG-ROCHE-2432492

PATIENT
  Age: 58 Year
  Sex: Female

DRUGS (1)
  1. ROACTEMRA [Suspect]
     Active Substance: TOCILIZUMAB
     Indication: RHEUMATOID ARTHRITIS
     Route: 058
     Dates: start: 20180201

REACTIONS (2)
  - Peripheral swelling [Recovered/Resolved]
  - Blood test abnormal [Unknown]

NARRATIVE: CASE EVENT DATE: 201909
